FAERS Safety Report 24284019 (Version 5)
Quarter: 2025Q1

REPORT INFORMATION
  Report Type: Spontaneous
  Country: PL (occurrence: PL)
  Receive Date: 20240905
  Receipt Date: 20250227
  Transmission Date: 20250409
  Serious: Yes (Hospitalization, Disabling, Other)
  Sender: UCB
  Company Number: None

PATIENT
  Age: 34 Year
  Sex: Female

DRUGS (16)
  1. LACOSAMIDE [Suspect]
     Active Substance: LACOSAMIDE
     Indication: Seizure
     Dosage: 200 MILLIGRAM, 2X/DAY (BID)
  2. LACOSAMIDE [Suspect]
     Active Substance: LACOSAMIDE
     Indication: Status epilepticus
  3. LEVETIRACETAM [Suspect]
     Active Substance: LEVETIRACETAM
     Indication: Seizure
     Dosage: 1500 MILLIGRAM, 2X/DAY (BID)
  4. LEVETIRACETAM [Suspect]
     Active Substance: LEVETIRACETAM
     Indication: Epilepsy
     Route: 042
  5. LEVETIRACETAM [Suspect]
     Active Substance: LEVETIRACETAM
     Indication: Off label use
  6. LEVETIRACETAM [Suspect]
     Active Substance: LEVETIRACETAM
     Indication: Status epilepticus
  7. LAMOTRIGINE [Suspect]
     Active Substance: LAMOTRIGINE
     Indication: Epilepsy
     Dosage: 100 MILLIGRAM, 2X/DAY (BID)
  8. LAMOTRIGINE [Suspect]
     Active Substance: LAMOTRIGINE
     Indication: Seizure
     Dosage: 250 MILLIGRAM, 2X/DAY (BID)
  9. LAMOTRIGINE [Suspect]
     Active Substance: LAMOTRIGINE
     Indication: Status epilepticus
  10. TRAZODONE [Suspect]
     Active Substance: TRAZODONE HYDROCHLORIDE
     Indication: Anxiety disorder
  11. TRAZODONE [Suspect]
     Active Substance: TRAZODONE HYDROCHLORIDE
     Indication: Depression
  12. BUSPIRONE [Suspect]
     Active Substance: BUSPIRONE HYDROCHLORIDE
     Indication: Anxiety disorder
  13. BUSPIRONE [Suspect]
     Active Substance: BUSPIRONE HYDROCHLORIDE
     Indication: Depression
  14. RISPERIDONE [Suspect]
     Active Substance: RISPERIDONE
     Indication: Depression
  15. RISPERIDONE [Suspect]
     Active Substance: RISPERIDONE
     Indication: Anxiety disorder
  16. DIAZEPAM [Suspect]
     Active Substance: DIAZEPAM
     Indication: Epilepsy
     Route: 042

REACTIONS (8)
  - Epilepsy [Recovering/Resolving]
  - Premature delivery [Not Recovered/Not Resolved]
  - Anxiety disorder [Unknown]
  - Depression [Unknown]
  - Maternal exposure during pregnancy [Unknown]
  - Therapeutic product effect decreased [Unknown]
  - Off label use [Unknown]
  - Therapeutic product effect incomplete [Unknown]
